FAERS Safety Report 10489120 (Version 3)
Quarter: 2015Q2

REPORT INFORMATION
  Report Type: Spontaneous
  Country: US (occurrence: US)
  Receive Date: 20141002
  Receipt Date: 20150608
  Transmission Date: 20150821
  Serious: Yes (Hospitalization)
  Sender: FDA-Public Use
  Company Number: US-BAYER-2014-145015

PATIENT
  Age: 30 Year
  Sex: Female
  Weight: 77.98 kg

DRUGS (4)
  1. MIRENA [Suspect]
     Active Substance: LEVONORGESTREL
     Indication: CONTRACEPTION
     Dosage: 20 MCG/24HR, CONT
     Route: 015
     Dates: start: 20110701, end: 20121012
  2. PROAIR HFA [Concomitant]
     Active Substance: ALBUTEROL SULFATE
     Indication: ASTHMA
     Dosage: UNK
     Dates: start: 1990
  3. VIVELLE-DOT [Concomitant]
     Active Substance: ESTRADIOL
  4. ADVAIR HFA [Concomitant]
     Active Substance: FLUTICASONE PROPIONATE\SALMETEROL XINAFOATE

REACTIONS (6)
  - Genital haemorrhage [None]
  - Pain [None]
  - Injury [None]
  - Uterine perforation [None]
  - Malaise [None]
  - Nausea [None]

NARRATIVE: CASE EVENT DATE: 201201
